FAERS Safety Report 9431962 (Version 4)
Quarter: 2013Q4

REPORT INFORMATION
  Report Type: Spontaneous
  Country: BR (occurrence: BR)
  Receive Date: 20130731
  Receipt Date: 20131112
  Transmission Date: 20140711
  Serious: Yes (Hospitalization)
  Sender: FDA-Public Use
  Company Number: BR-AMGEN-BRASP2013053397

PATIENT
  Age: 38 Year
  Sex: Male
  Weight: 85 kg

DRUGS (8)
  1. ENBREL [Suspect]
     Indication: PSORIASIS
     Dosage: UNK
     Route: 065
     Dates: start: 2009
  2. ENBREL [Suspect]
     Dosage: 50 MG, 2X/WEEK
     Route: 058
     Dates: start: 200909, end: 201212
  3. ENBREL [Suspect]
     Dosage: 50 MG, 2 X/WEEK
     Route: 058
     Dates: start: 2009
  4. SECRETIN [Concomitant]
     Dosage: UNK
  5. CIPROFLOXACIN [Concomitant]
     Dosage: UNK
  6. OMEPRAZOL                          /00661201/ [Concomitant]
     Dosage: UNK
  7. AMITRIL [Concomitant]
     Dosage: UNK
  8. HYDROCHLOROTHIAZIDE [Concomitant]
     Dosage: UNK

REACTIONS (19)
  - Depression [Unknown]
  - Feeling abnormal [Unknown]
  - Pain [Unknown]
  - Pyrexia [Unknown]
  - Tremor [Unknown]
  - Blood pressure decreased [Recovered/Resolved]
  - Agitation [Unknown]
  - Nail disorder [Unknown]
  - Alopecia [Unknown]
  - Scab [Unknown]
  - Weight decreased [Unknown]
  - Hypokinesia [Unknown]
  - Skin exfoliation [Unknown]
  - Asthenia [Not Recovered/Not Resolved]
  - Vomiting [Unknown]
  - Nosocomial infection [Unknown]
  - Bacterial infection [Unknown]
  - Psoriasis [Unknown]
  - Infection [Unknown]
